FAERS Safety Report 6170402-4 (Version None)
Quarter: 2009Q2

REPORT INFORMATION
  Report Type: 
  Country: None (occurrence: None)
  Receive Date: 20090427
  Receipt Date: 20090427
  Transmission Date: 20091009
  Serious: Yes (Life-Threatening)
  Sender: FDA-Public Use
  Company Number: None

PATIENT
  Age: 67 Year
  Sex: Male
  Weight: 93 kg

DRUGS (8)
  1. INSULIN REGULAR [Suspect]
     Indication: BLOOD GLUCOSE
     Dosage: 6.5 UNITS/ HR IV
     Route: 042
     Dates: start: 20081204, end: 20081210
  2. HEPARIN [Concomitant]
  3. BACTRIM [Concomitant]
  4. SENNA [Concomitant]
  5. DOCUSATE [Concomitant]
  6. RANITIDINE [Concomitant]
  7. PREDNISONE [Concomitant]
  8. AMIODARONE HCL [Concomitant]

REACTIONS (3)
  - BLOOD GLUCOSE DECREASED [None]
  - TREMOR [None]
  - UNRESPONSIVE TO STIMULI [None]
